FAERS Safety Report 20439087 (Version 1)
Quarter: 2022Q1

REPORT INFORMATION
  Report Type: Report from Study
  Country: FR (occurrence: FR)
  Receive Date: 20220207
  Receipt Date: 20220207
  Transmission Date: 20220423
  Serious: Yes (Hospitalization)
  Sender: FDA-Public Use
  Company Number: FR-SERVIER-S22001041

PATIENT

DRUGS (10)
  1. PEGASPARGASE [Suspect]
     Active Substance: PEGASPARGASE
     Indication: Acute lymphocytic leukaemia
     Dosage: 2500 IU, ON D4
     Route: 042
     Dates: start: 20211216
  2. TN UNSPECIFIED [Concomitant]
     Indication: Acute lymphocytic leukaemia
     Dosage: 1.6 MG, ON D1, D8 AND D15
     Route: 042
     Dates: start: 20211213, end: 20211227
  3. TN UNSPECIFIED [Concomitant]
     Indication: Acute lymphocytic leukaemia
     Dosage: 26 MG, ON D1, D8 AND D15
     Route: 042
     Dates: start: 20211213, end: 20211227
  4. TN UNSPECIFIED [Concomitant]
     Indication: Acute lymphocytic leukaemia
     Dosage: 10.5 MG, ON D1 TO D7, D15 TO D21
     Route: 048
     Dates: start: 20211213, end: 20220102
  5. TN UNSPECIFIED [Concomitant]
     Dosage: 15 MG, ON D2 AND D31
     Route: 037
     Dates: start: 20211216, end: 20220117
  6. TN UNSPECIFIED [Concomitant]
     Indication: Acute lymphocytic leukaemia
     Dosage: 30 MG, ON D2 AND D31
     Route: 037
     Dates: start: 20211216, end: 20220117
  7. TN UNSPECIFIED [Concomitant]
     Dosage: 80 MG, ON D31 TO D34, D38 TO D41
     Route: 042
     Dates: start: 20220118, end: 20220127
  8. TN UNSPECIFIED [Concomitant]
     Indication: Acute lymphocytic leukaemia
     Dosage: 15 MG, ON D2 AND D31
     Route: 037
     Dates: start: 20211216, end: 20220117
  9. TN UNSPECIFIED [Concomitant]
     Indication: Acute lymphocytic leukaemia
     Dosage: 1060 MG, ON D29
     Route: 042
     Dates: start: 20220114
  10. TN UNSPECIFIED [Concomitant]
     Indication: Acute lymphocytic leukaemia
     Dosage: 60 MG, ON D29 TO D42
     Route: 048
     Dates: start: 20220114, end: 20220127

REACTIONS (3)
  - Hemiparesis [Not Recovered/Not Resolved]
  - Dysarthria [Not Recovered/Not Resolved]
  - Motor dysfunction [Not Recovered/Not Resolved]

NARRATIVE: CASE EVENT DATE: 20220127
